FAERS Safety Report 5149101-3 (Version None)
Quarter: 2006Q4

REPORT INFORMATION
  Report Type: 
  Country: None (occurrence: None)
  Receive Date: 20061113
  Receipt Date: 20060721
  Transmission Date: 20070319
  Serious: No
  Sender: FDA-Public Use
  Company Number: US-GLAXOSMITHKLINE-A0613143A

PATIENT
  Age: 90 Year
  Sex: Male

DRUGS (14)
  1. COREG [Suspect]
     Dosage: 12.5MG TWICE PER DAY
     Route: 048
     Dates: start: 20060716
  2. OXYGEN [Concomitant]
  3. DIGOXIN [Concomitant]
  4. LISINOPRIL [Concomitant]
  5. FUROSEMIDE [Concomitant]
  6. OMEPRAZOLE [Concomitant]
  7. TERAZOSIN HCL [Concomitant]
  8. POTASSIUM ACETATE [Concomitant]
  9. VITAMINS [Concomitant]
  10. VIT B [Concomitant]
  11. FLAX SEED OIL [Concomitant]
  12. BELLADONA + OPIUM [Concomitant]
  13. NITROGLYCERIN [Concomitant]
  14. CODEINE [Concomitant]

REACTIONS (3)
  - BRADYCARDIA [None]
  - DIZZINESS [None]
  - VISION BLURRED [None]
